FAERS Safety Report 14296208 (Version 7)
Quarter: 2018Q2

REPORT INFORMATION
  Report Type: Report from Study
  Country: US (occurrence: US)
  Receive Date: 20171218
  Receipt Date: 20180430
  Transmission Date: 20180711
  Serious: Yes (Hospitalization, Other)
  Sender: FDA-Public Use
  Company Number: US-PFIZER INC-2017492717

PATIENT
  Age: 66 Year
  Sex: Female

DRUGS (2)
  1. FASLODEX [Concomitant]
     Active Substance: FULVESTRANT
     Dosage: UNK (FIRST DOSE)
     Dates: start: 201710
  2. IBRANCE [Suspect]
     Active Substance: PALBOCICLIB
     Indication: BREAST CANCER FEMALE
     Dosage: 125 MG, CYCLIC (DAILY/21 DAYS ON AND 7 DAYS OFF)
     Route: 048
     Dates: start: 20171111, end: 20180223

REACTIONS (16)
  - Nausea [Not Recovered/Not Resolved]
  - Joint swelling [Recovering/Resolving]
  - Vomiting [Unknown]
  - Blood magnesium decreased [Unknown]
  - Epistaxis [Recovered/Resolved]
  - Dyspnoea [Recovering/Resolving]
  - Renal disorder [Not Recovered/Not Resolved]
  - Dyspepsia [Recovered/Resolved]
  - Condition aggravated [Recovering/Resolving]
  - Thyroid disorder [Not Recovered/Not Resolved]
  - Gingival disorder [Unknown]
  - Haemoglobin decreased [Unknown]
  - Peripheral swelling [Recovering/Resolving]
  - Arrhythmia [Unknown]
  - Diarrhoea [Unknown]
  - Dysphagia [Recovering/Resolving]

NARRATIVE: CASE EVENT DATE: 2017
